FAERS Safety Report 24281014 (Version 3)
Quarter: 2024Q4

REPORT INFORMATION
  Report Type: Spontaneous
  Country: FR (occurrence: FR)
  Receive Date: 20240904
  Receipt Date: 20241004
  Transmission Date: 20250115
  Serious: Yes (Other)
  Sender: BAYER
  Company Number: FR-BAYER-2024A125822

PATIENT
  Age: 47 Year
  Sex: Female

DRUGS (1)
  1. MIRENA [Suspect]
     Active Substance: LEVONORGESTREL
     Dosage: 20?G/DAY
     Route: 015
     Dates: start: 20201019

REACTIONS (2)
  - Device breakage [None]
  - Complication of device removal [None]
